FAERS Safety Report 8443169-4 (Version None)
Quarter: 2012Q2

REPORT INFORMATION
  Report Type: 
  Country: None (occurrence: None)
  Receive Date: 20120616
  Receipt Date: 20120605
  Transmission Date: 20120825
  Serious: Yes (Hospitalization)
  Sender: FDA-Public Use
  Company Number: US-VERTEX PHARMACEUTICALS INC.-AE-2012-006031

PATIENT
  Sex: Male

DRUGS (3)
  1. PEGASYS [Concomitant]
     Indication: HEPATITIS C
     Route: 058
     Dates: start: 20120330
  2. RIBAVIRIN [Concomitant]
     Indication: HEPATITIS C
     Route: 048
     Dates: start: 20120330
  3. INCIVEK [Suspect]
     Indication: HEPATITIS C
     Route: 048
     Dates: start: 20120330

REACTIONS (9)
  - DYSPNOEA [None]
  - PYREXIA [None]
  - DIZZINESS [None]
  - CONFUSIONAL STATE [None]
  - THROMBOCYTOPENIA [None]
  - ANXIETY [None]
  - IRRITABILITY [None]
  - ANAEMIA [None]
  - CYANOSIS [None]
